FAERS Safety Report 7418329-1 (Version None)
Quarter: 2011Q2

REPORT INFORMATION
  Report Type: 
  Country: None (occurrence: None)
  Receive Date: 20110415
  Receipt Date: 20110407
  Transmission Date: 20111010
  Serious: Yes (Hospitalization)
  Sender: FDA-Public Use
  Company Number: A0907378A

PATIENT
  Age: 71 Year
  Sex: Male

DRUGS (10)
  1. SPIRIVA [Concomitant]
  2. ENALAPRIL [Concomitant]
  3. FUROSEMIDE [Concomitant]
  4. ADVAIR HFA [Suspect]
     Indication: CHRONIC OBSTRUCTIVE PULMONARY DISEASE
     Dosage: 1PUFF TWICE PER DAY
     Route: 055
     Dates: start: 20060101
  5. AVANDIA [Suspect]
     Route: 048
     Dates: end: 20100923
  6. INSULIN NOVOLIN [Concomitant]
  7. FERROUS SULFATE [Concomitant]
  8. OXYGEN [Concomitant]
  9. METOPROLOL TARTRATE [Concomitant]
  10. ALBUTEROL [Concomitant]

REACTIONS (6)
  - BLADDER OPERATION [None]
  - BLOOD GLUCOSE DECREASED [None]
  - RENAL CANCER [None]
  - BLADDER ABLATION [None]
  - DYSPNOEA [None]
  - RENAL SURGERY [None]
